FAERS Safety Report 8846484 (Version 3)
Quarter: 2013Q3

REPORT INFORMATION
  Report Type: Spontaneous
  Country: BR (occurrence: BR)
  Receive Date: 20121017
  Receipt Date: 20130722
  Transmission Date: 20140515
  Serious: Yes (Hospitalization, Other)
  Sender: FDA-Public Use
  Company Number: BR-ROCHE-1143058

PATIENT
  Sex: Male
  Weight: 83 kg

DRUGS (6)
  1. RIVOTRIL [Suspect]
     Indication: DIZZINESS
     Dosage: HALF IN MORNING AND HALF IN AFTERNOON
     Route: 048
     Dates: start: 1990
  2. RIVOTRIL [Suspect]
     Route: 048
  3. FLUNARIZINE DIHYDROCHLORIDE [Suspect]
     Indication: DIZZINESS
     Dosage: STOPPED 8 MONTHS AGO; FLUNARIN
     Route: 065
  4. DUOMOX [Suspect]
     Indication: PROSTATIC DISORDER
     Route: 065
  5. FLUOXETINE [Concomitant]
     Dosage: AS REQUIRED
     Route: 065
     Dates: start: 2010
  6. GINGIO [Concomitant]
     Route: 065

REACTIONS (7)
  - Cardiac disorder [Unknown]
  - Cardiac arrest [Recovered/Resolved]
  - Depression [Recovered/Resolved]
  - Dementia Alzheimer^s type [Unknown]
  - Breast disorder [Not Recovered/Not Resolved]
  - Tinnitus [Unknown]
  - Drug ineffective [Unknown]
